FAERS Safety Report 25321238 (Version 5)
Quarter: 2025Q4

REPORT INFORMATION
  Report Type: Report from Study
  Country: US (occurrence: US)
  Receive Date: 20250515
  Receipt Date: 20251009
  Transmission Date: 20260118
  Serious: Yes (Hospitalization, Other)
  Sender: AMGEN
  Company Number: US-HORIZON THERAPEUTICS-HZN-2022-003698

PATIENT
  Age: 61 Year
  Sex: Male

DRUGS (4)
  1. TEPEZZA [Suspect]
     Active Substance: TEPROTUMUMAB-TRBW
     Indication: Toxic goitre
     Dosage: UNK, FIRST INFUSION OF FIRST COURSE
     Route: 042
     Dates: start: 20220426
  2. TEPEZZA [Suspect]
     Active Substance: TEPROTUMUMAB-TRBW
     Dosage: UNK, SECOND INFUSION OF FIRST COURSE
     Route: 042
     Dates: start: 2022
  3. TEPEZZA [Suspect]
     Active Substance: TEPROTUMUMAB-TRBW
     Dosage: UNK, FIRST NFUSION OF SECOND COURSE
     Route: 042
  4. TEPEZZA [Suspect]
     Active Substance: TEPROTUMUMAB-TRBW
     Dosage: UNK, SECOND INFUSION OF SECOND COURSE
     Route: 042

REACTIONS (15)
  - Blood pressure increased [Unknown]
  - Deafness [Unknown]
  - Exophthalmos [Unknown]
  - Pain [Unknown]
  - Ageusia [Unknown]
  - Anosmia [Unknown]
  - Headache [Unknown]
  - Fatigue [Unknown]
  - Blood glucose increased [Unknown]
  - Muscle spasms [Unknown]
  - Sleep disorder [Unknown]
  - Off label use [Unknown]
  - Vomiting [Unknown]
  - Adverse event [Unknown]
  - Nausea [Unknown]

NARRATIVE: CASE EVENT DATE: 20220101
